FAERS Safety Report 9907983 (Version 1)
Quarter: 2014Q1

REPORT INFORMATION
  Report Type: Report from Study
  Country: US (occurrence: US)
  Receive Date: 20140219
  Receipt Date: 20140219
  Transmission Date: 20141002
  Serious: Yes (Death)
  Sender: FDA-Public Use
  Company Number: US-ROCHE-1327145

PATIENT
  Sex: Female
  Weight: 61.3 kg

DRUGS (10)
  1. AVASTIN [Suspect]
     Indication: BREAST CANCER FEMALE
     Route: 042
  2. AVASTIN [Suspect]
     Route: 042
  3. XELODA [Suspect]
     Indication: BREAST CANCER FEMALE
     Route: 065
  4. CARBOPLATIN [Concomitant]
  5. GEMZAR [Concomitant]
  6. ERIBULIN [Concomitant]
  7. DOXIL (UNITED STATES) [Concomitant]
  8. ABRAXANE [Concomitant]
     Route: 042
  9. ABRAXANE [Concomitant]
     Route: 042
  10. TAXOL [Concomitant]

REACTIONS (1)
  - Death [Fatal]
